FAERS Safety Report 8045405-5 (Version None)
Quarter: 2012Q1

REPORT INFORMATION
  Report Type: 
  Country: None (occurrence: None)
  Receive Date: 20120113
  Receipt Date: 20120106
  Transmission Date: 20120608
  Serious: Yes (Disabling)
  Sender: FDA-Public Use
  Company Number: NL-PFIZER INC-2012004284

PATIENT
  Age: 62 Year
  Sex: Male

DRUGS (1)
  1. LATANOPROST [Suspect]
     Dosage: UNK

REACTIONS (1)
  - ANOSMIA [None]
